FAERS Safety Report 20983341 (Version 1)
Quarter: 2022Q2

REPORT INFORMATION
  Report Type: Spontaneous
  Country: US (occurrence: US)
  Receive Date: 20220620
  Receipt Date: 20220620
  Transmission Date: 20220721
  Serious: No
  Sender: FDA-Public Use
  Company Number: US-SA-SAC20220615000273

PATIENT
  Sex: Female

DRUGS (36)
  1. DUPIXENT [Suspect]
     Active Substance: DUPILUMAB
     Indication: Asthma
     Dosage: 300 MG, QOW
     Route: 058
  2. TRIAMCINOLONE ACETONIDE [Concomitant]
     Active Substance: TRIAMCINOLONE ACETONIDE
  3. NYSTATIN [Concomitant]
     Active Substance: NYSTATIN
  4. TRIAMCINOLONE [Concomitant]
     Active Substance: TRIAMCINOLONE
  5. LORATADINE [Concomitant]
     Active Substance: LORATADINE
  6. LORAZEPAM [Concomitant]
     Active Substance: LORAZEPAM
  7. GAMMA AMINOBUTYRIC ACID [Concomitant]
  8. FLUTICASONE PROPIONATE [Concomitant]
     Active Substance: FLUTICASONE PROPIONATE
  9. VITAMIN D3 [Concomitant]
     Active Substance: CHOLECALCIFEROL
  10. VITAMIN B COMPLEX [Concomitant]
     Active Substance: CYANOCOBALAMIN\DEXPANTHENOL\NIACINAMIDE\PYRIDOXINE HYDROCHLORIDE\RIBOFLAVIN 5^-PHOSPHATE SODIUM\THIA
  11. VITAMIN C [Concomitant]
     Active Substance: ASCORBIC ACID
  12. VALSARTAN [Concomitant]
     Active Substance: VALSARTAN
  13. OZEMPIC [Concomitant]
     Active Substance: SEMAGLUTIDE
     Dosage: OZEMPIC 1/0.75 (3) PEN INJCTR
  14. TRAMADOL HCL [Concomitant]
     Active Substance: TRAMADOL HYDROCHLORIDE
     Dosage: 50MG
  15. ROSUVASTATIN CALCIUM [Concomitant]
     Active Substance: ROSUVASTATIN CALCIUM
     Dosage: 40MG
  16. OMEPRAZOLE [Concomitant]
     Active Substance: OMEPRAZOLE
     Dosage: 10MG
  17. METOPROLOL SUCCINATE [Concomitant]
     Active Substance: METOPROLOL SUCCINATE
     Dosage: 10MG
  18. MONTELUKAST SODIUM [Concomitant]
     Active Substance: MONTELUKAST SODIUM
     Indication: Asthma
     Dosage: 600MG
  19. METFORMIN [Concomitant]
     Active Substance: METFORMIN HYDROCHLORIDE
     Dosage: 15MG
  20. MELOXICAM [Concomitant]
     Active Substance: MELOXICAM
  21. L-LYSINE [LYSINE] [Concomitant]
  22. HYDROCODONE [Concomitant]
     Active Substance: HYDROCODONE
  23. ACETAMINOPHEN [Concomitant]
     Active Substance: ACETAMINOPHEN
  24. GLUCOSAMINE [Concomitant]
     Active Substance: GLUCOSAMINE
  25. GABAPENTIN [Concomitant]
     Active Substance: GABAPENTIN
  26. ZINC [Concomitant]
     Active Substance: ZINC
  27. CALCIUM [Concomitant]
     Active Substance: CALCIUM
  28. HERBALS [Concomitant]
     Active Substance: HERBALS
  29. ALBUTEROL SULFATE [Concomitant]
     Active Substance: ALBUTEROL SULFATE
  30. ALPHA LIPOIC ACID [Concomitant]
     Active Substance: .ALPHA.-LIPOIC ACID
  31. ADVAIR HFA [Concomitant]
     Active Substance: FLUTICASONE PROPIONATE\SALMETEROL XINAFOATE
     Dosage: 100-50 MCG
  32. OXYGEN [Concomitant]
     Active Substance: OXYGEN
  33. MAGNESIUM [MAGNESIUM MALATE] [Concomitant]
  34. DIGESTIVE ENZYME [AMYLASE;LIPASE;PROTEASE NOS] [Concomitant]
  35. ACETYLCYSTEINE [Concomitant]
     Active Substance: ACETYLCYSTEINE
  36. OFEV [Concomitant]
     Active Substance: NINTEDANIB

REACTIONS (4)
  - Nausea [Unknown]
  - Vomiting [Unknown]
  - Decreased appetite [Unknown]
  - Abdominal discomfort [Unknown]
